FAERS Safety Report 6655649-2 (Version None)
Quarter: 2010Q1

REPORT INFORMATION
  Report Type: 
  Country: None (occurrence: None)
  Receive Date: 20100329
  Receipt Date: 20100318
  Transmission Date: 20100710
  Serious: Yes (Other)
  Sender: FDA-Public Use
  Company Number: US-PFIZER INC-2009310377

PATIENT
  Sex: Male
  Weight: 90.703 kg

DRUGS (2)
  1. TOVIAZ [Suspect]
     Indication: MICTURITION URGENCY
     Dosage: 4 MG, 1X/DAY
     Route: 048
     Dates: start: 20090825, end: 20090801
  2. TOVIAZ [Suspect]
     Indication: POLLAKIURIA

REACTIONS (1)
  - SJOGREN'S SYNDROME [None]
